FAERS Safety Report 5651457-X (Version None)
Quarter: 2008Q1

REPORT INFORMATION
  Report Type: 
  Country: None (occurrence: None)
  Receive Date: 20080305
  Receipt Date: 20080207
  Transmission Date: 20080703
  Serious: Yes (Hospitalization, Other)
  Sender: FDA-Public Use
  Company Number: TR-ELI_LILLY_AND_COMPANY-TR200802005766

PATIENT
  Sex: Female
  Weight: 68 kg

DRUGS (3)
  1. HUMALOG MIX 75/25 [Suspect]
     Indication: DIABETES MELLITUS
     Dosage: 22 IU EACH MORNING
     Route: 058
     Dates: start: 20050101
  2. HUMALOG MIX 75/25 [Suspect]
     Dosage: 12 IU, NOON
     Route: 058
     Dates: start: 20050101
  3. HUMALOG MIX 75/25 [Suspect]
     Dosage: 20 IU, EACH EVENING
     Route: 058
     Dates: start: 20050101

REACTIONS (4)
  - BACTERIAL INFECTION [None]
  - CHOLECYSTOSTOMY [None]
  - ECZEMA [None]
  - SHOCK HYPOGLYCAEMIC [None]
